FAERS Safety Report 18523593 (Version 12)
Quarter: 2022Q3

REPORT INFORMATION
  Report Type: Report from Study
  Country: US (occurrence: US)
  Receive Date: 20201119
  Receipt Date: 20220803
  Transmission Date: 20221026
  Serious: Yes (Other)
  Sender: FDA-Public Use
  Company Number: NVSC2020US301258

PATIENT
  Sex: Female

DRUGS (1)
  1. KESIMPTA [Suspect]
     Active Substance: OFATUMUMAB
     Indication: Product used for unknown indication
     Dosage: 20 MG, QW
     Route: 058
     Dates: start: 20201029

REACTIONS (5)
  - Secondary progressive multiple sclerosis [Unknown]
  - Dysphonia [Unknown]
  - Confusional state [Unknown]
  - Fatigue [Recovering/Resolving]
  - Drug ineffective [Unknown]
